FAERS Safety Report 6619862-2 (Version None)
Quarter: 2010Q1

REPORT INFORMATION
  Report Type: 
  Country: None (occurrence: None)
  Receive Date: 20100309
  Receipt Date: 20100301
  Transmission Date: 20100710
  Serious: Yes (Life-Threatening, Hospitalization, Other)
  Sender: FDA-Public Use
  Company Number: DE-JNJFOC-20090905071

PATIENT
  Sex: Female

DRUGS (19)
  1. DIPIPERON [Suspect]
     Indication: DRUG USE FOR UNKNOWN INDICATION
     Route: 048
     Dates: start: 20090910, end: 20090916
  2. DIPIPERON [Suspect]
     Route: 048
     Dates: start: 20090910, end: 20090916
  3. DIPIPERON [Suspect]
     Route: 048
     Dates: start: 20090910, end: 20090916
  4. HALDOL [Suspect]
     Indication: DRUG USE FOR UNKNOWN INDICATION
     Route: 048
     Dates: start: 20090909, end: 20090917
  5. HALDOL [Suspect]
     Route: 048
     Dates: start: 20090909, end: 20090917
  6. HALDOL [Suspect]
     Route: 048
     Dates: start: 20090909, end: 20090917
  7. ERGENYL [Suspect]
     Indication: DRUG USE FOR UNKNOWN INDICATION
     Route: 048
     Dates: start: 20090913, end: 20090917
  8. PROMETHAZINE [Suspect]
     Indication: DRUG USE FOR UNKNOWN INDICATION
     Route: 048
     Dates: start: 20090916, end: 20090916
  9. CIATYL [Suspect]
     Indication: DRUG USE FOR UNKNOWN INDICATION
     Route: 048
     Dates: start: 20090911, end: 20090916
  10. CIATYL [Suspect]
     Route: 048
     Dates: start: 20090911, end: 20090916
  11. CIATYL [Suspect]
     Route: 048
     Dates: start: 20090911, end: 20090916
  12. CIATYL [Suspect]
     Route: 048
     Dates: start: 20090911, end: 20090916
  13. CIATYL [Suspect]
     Route: 048
     Dates: start: 20090911, end: 20090916
  14. LORAZEPAM [Suspect]
     Indication: DRUG USE FOR UNKNOWN INDICATION
     Route: 048
     Dates: start: 20090916, end: 20090916
  15. DIAZEPAM TAB [Suspect]
     Indication: DRUG USE FOR UNKNOWN INDICATION
     Route: 048
     Dates: start: 20090908, end: 20090915
  16. DIAZEPAM TAB [Suspect]
     Route: 048
     Dates: start: 20090908, end: 20090915
  17. DIAZEPAM TAB [Suspect]
     Route: 048
     Dates: start: 20090908, end: 20090915
  18. FLUNINOC [Suspect]
     Indication: DRUG USE FOR UNKNOWN INDICATION
     Route: 048
     Dates: start: 20090916, end: 20090916
  19. AKINETON [Concomitant]
     Indication: DRUG USE FOR UNKNOWN INDICATION
     Route: 048
     Dates: start: 20090909, end: 20090918

REACTIONS (8)
  - ANXIETY [None]
  - DYSARTHRIA [None]
  - FALL [None]
  - GAIT DISTURBANCE [None]
  - MULTIPLE DRUG OVERDOSE [None]
  - PSYCHOTIC DISORDER [None]
  - RESPIRATORY FAILURE [None]
  - SOMNOLENCE [None]
